FAERS Safety Report 16205821 (Version 2)
Quarter: 2019Q4

REPORT INFORMATION
  Report Type: Spontaneous
  Country: IN (occurrence: IN)
  Receive Date: 20190417
  Receipt Date: 20191007
  Transmission Date: 20200122
  Serious: Yes (Death, Life-Threatening, Hospitalization)
  Sender: FDA-Public Use
  Company Number: IN-SUN PHARMACEUTICAL INDUSTRIES LTD-2019R1-205188

PATIENT
  Age: 50 Year
  Sex: Female

DRUGS (1)
  1. LITHIUM. [Suspect]
     Active Substance: LITHIUM
     Indication: BIPOLAR DISORDER
     Dosage: 600 MG,UNK
     Route: 065

REACTIONS (15)
  - Myoclonus [Unknown]
  - White blood cell count increased [Unknown]
  - Septic encephalopathy [Fatal]
  - Cardiac arrest [Unknown]
  - Seizure [Unknown]
  - Drug level increased [Unknown]
  - Hyperammonaemia [Unknown]
  - Renal impairment [Unknown]
  - Hypotension [Unknown]
  - Pyrexia [Unknown]
  - Delirium [Unknown]
  - Patient uncooperative [Unknown]
  - Sepsis [Unknown]
  - Anaemia [Unknown]
  - Urine output decreased [Unknown]
